FAERS Safety Report 6929696-7 (Version None)
Quarter: 2010Q3

REPORT INFORMATION
  Report Type: 
  Country: None (occurrence: None)
  Receive Date: 20100818
  Receipt Date: 20100811
  Transmission Date: 20110219
  Serious: Yes (Other)
  Sender: FDA-Public Use
  Company Number: US-BAYER-201023561NA

PATIENT
  Age: 79 Year
  Sex: Female

DRUGS (5)
  1. NEXAVAR [Suspect]
     Indication: HEPATIC NEOPLASM MALIGNANT
     Dosage: TOTAL DAILY DOSE: 400 MG  UNIT DOSE: 200 MG
     Route: 048
     Dates: start: 20100415, end: 20100501
  2. NEXAVAR [Suspect]
     Dosage: TOTAL DAILY DOSE: 800 MG  UNIT DOSE: 200 MG
     Route: 048
     Dates: start: 20100501
  3. NEXAVAR [Suspect]
     Dosage: DOSE LOWERED
     Route: 048
  4. LEVALOR [Concomitant]
  5. REGULAR INSULIN [Concomitant]
     Dosage: REGULAR INSULIN SLIDING SCALE-AMOUNT BASED ON BLOOD SUGAR

REACTIONS (5)
  - BLISTER [None]
  - BLOOD GLUCOSE INCREASED [None]
  - HEPATIC PAIN [None]
  - NERVOUSNESS [None]
  - PLATELET COUNT DECREASED [None]
